FAERS Safety Report 17016469 (Version 6)
Quarter: 2020Q4

REPORT INFORMATION
  Report Type: Spontaneous
  Country: US (occurrence: US)
  Receive Date: 20191111
  Receipt Date: 20201021
  Transmission Date: 20210113
  Serious: No
  Sender: FDA-Public Use
  Company Number: US-PFIZER INC-2019484553

PATIENT
  Age: 55 Year
  Sex: Female
  Weight: 65.77 kg

DRUGS (19)
  1. VFEND [Suspect]
     Active Substance: VORICONAZOLE
     Dosage: UNK [BACK ON FOR ANOTHER 2 MONTHS]
     Dates: start: 2013, end: 2013
  2. TENORMIN [Concomitant]
     Active Substance: ATENOLOL
     Dosage: 50 MG, 1X/DAY
     Route: 048
  3. VFEND [Suspect]
     Active Substance: VORICONAZOLE
     Dosage: 200 MG, 2X/DAY (EVERY 12 HOURS)
     Route: 048
     Dates: start: 2017
  4. LEVOXYL [Concomitant]
     Active Substance: LEVOTHYROXINE SODIUM
     Dosage: 175 UG, 1X/DAY
     Route: 048
  5. DOXYCYCLINE. [Concomitant]
     Active Substance: DOXYCYCLINE
     Dosage: UNK
  6. VFEND [Suspect]
     Active Substance: VORICONAZOLE
     Dosage: 200 MG, 2X/DAY
     Route: 048
     Dates: start: 201103
  7. VFEND [Suspect]
     Active Substance: VORICONAZOLE
     Dosage: 200 MG, 2X/DAY (EVERY 12 HOURS)
     Route: 048
     Dates: start: 2012
  8. PROGRAF [Concomitant]
     Active Substance: TACROLIMUS
     Dosage: 0.5 MG, 2X/DAY
     Route: 048
     Dates: start: 20170406
  9. DOCOSAHEXANOIC ACID;EICOSAPENTAENOIC ACID [Concomitant]
     Dosage: 1 DF, 1X/DAY (1 CAPSULE BY MOUTH ONCE DAILY)
     Route: 048
     Dates: start: 20190813
  10. VFEND [Suspect]
     Active Substance: VORICONAZOLE
     Dosage: 200 MG, 2X/DAY (EVERY 12 HOURS)
     Route: 048
     Dates: start: 2013, end: 2016
  11. DELTASONE [Concomitant]
     Active Substance: PREDNISONE
     Dosage: UNK, 1X/DAY (0.6 TABLETS BY MOUTH ONCE DAILY)
     Route: 048
     Dates: start: 20160823
  12. IRON [Concomitant]
     Active Substance: IRON
     Dosage: UNK, 1X/DAY (FERROUS SULFATE (IRON) 325 MG (65 MG IRON) ORAL TAB, 1 TABLET BY MOUTH ONCE DAILY)
     Route: 048
     Dates: start: 20110917
  13. VFEND [Suspect]
     Active Substance: VORICONAZOLE
     Indication: FUNGAL INFECTION
     Dosage: UNK [FOR 3 MONTHS, THEN THERE^S A BREAK]
  14. VFEND [Suspect]
     Active Substance: VORICONAZOLE
     Dosage: 200 MG, 2X/DAY
     Route: 048
  15. MYFORTIC [Concomitant]
     Active Substance: MYCOPHENOLATE SODIUM
     Dosage: 180 MG, 2X/DAY
     Route: 048
     Dates: start: 20170725
  16. WARFARIN [Concomitant]
     Active Substance: WARFARIN
     Dosage: 3 MG, 1X/DAY (3 MG BY MOUTH ONCE DAILY)
     Route: 048
  17. VFEND [Suspect]
     Active Substance: VORICONAZOLE
     Dosage: 200 MG
  18. AMITRIPTYLINE [Concomitant]
     Active Substance: AMITRIPTYLINE
     Dosage: 60 MG, DAILY (1 TABLET BY MOUTH DAILY AT BEDTIME)
     Route: 048
     Dates: start: 20140226
  19. CALCIUM + VITAMIN D3 [Concomitant]
     Active Substance: CALCIUM\CHOLECALCIFEROL
     Dosage: 1 DF, 1X/DAY (1 CAPSULE BY MOUTH ONCE DAILY)
     Route: 048

REACTIONS (6)
  - Feeling abnormal [Unknown]
  - Limb mass [Unknown]
  - Cyst [Unknown]
  - Off label use [Unknown]
  - Drug ineffective for unapproved indication [Unknown]
  - Arthritis [Unknown]
